FAERS Safety Report 7525050-8 (Version None)
Quarter: 2011Q2

REPORT INFORMATION
  Report Type: 
  Country: None (occurrence: None)
  Receive Date: 20110606
  Receipt Date: 20110523
  Transmission Date: 20111010
  Serious: No
  Sender: FDA-Public Use
  Company Number: US-ELI_LILLY_AND_COMPANY-US201010005737

PATIENT
  Sex: Female

DRUGS (11)
  1. FORTEO [Suspect]
     Indication: OSTEOPOROSIS
     Dosage: 20 UG, QD
     Route: 065
     Dates: start: 20090801
  2. METHOTREXATE [Concomitant]
     Dosage: 12.5 MG, WEEKLY (1/W)
  3. CELEBREX [Concomitant]
     Dosage: 100 MG, BID
  4. PREDNISONE [Concomitant]
     Dosage: 3 MG, QD
  5. GLIPIZIDE [Concomitant]
     Dosage: 2.5 MG, QD
  6. ENBREL [Concomitant]
     Dosage: 0.50 MG, WEEKLY (1/W)
  7. METFORMIN HCL [Concomitant]
     Dosage: 850 MG, TID
  8. TRAMADOL HCL [Concomitant]
     Indication: PAIN
     Dosage: UNK, PRN
  9. LISINOPRIL [Concomitant]
     Dosage: 10 MG, QD
  10. PRAVASTATIN [Concomitant]
     Dosage: 10 MG, QD
  11. TRICOR [Concomitant]
     Dosage: 145 MG, QD

REACTIONS (1)
  - INCISION SITE HYPOAESTHESIA [None]
